FAERS Safety Report 24660339 (Version 1)
Quarter: 2024Q4

REPORT INFORMATION
  Report Type: Spontaneous
  Country: DE (occurrence: DE)
  Receive Date: 20241125
  Receipt Date: 20241125
  Transmission Date: 20250115
  Serious: Yes (Other)
  Sender: GLAXOSMITHKLINE
  Company Number: DE-GSKCCFEMEA-Case-02114475_AE-90466

PATIENT

DRUGS (2)
  1. LAMICTAL [Suspect]
     Active Substance: LAMOTRIGINE
     Indication: Epilepsy
     Dosage: UNK, LOW DOSE
  2. LAMICTAL [Suspect]
     Active Substance: LAMOTRIGINE
     Indication: Seizure

REACTIONS (4)
  - Haematochezia [Unknown]
  - Epilepsy [Unknown]
  - Confusional state [Unknown]
  - Somnolence [Unknown]
